FAERS Safety Report 24201920 (Version 1)
Quarter: 2024Q3

REPORT INFORMATION
  Report Type: Spontaneous
  Country: JP (occurrence: JP)
  Receive Date: 20240812
  Receipt Date: 20240812
  Transmission Date: 20241016
  Serious: Yes (Other)
  Sender: BAUSCH AND LOMB
  Company Number: JP-MLMSERVICE-20240729-PI146062-00039-1

PATIENT
  Age: 36 Year
  Sex: Female
  Weight: 66.8 kg

DRUGS (13)
  1. ACYCLOVIR [Suspect]
     Active Substance: ACYCLOVIR
     Indication: Varicella zoster virus infection
     Dosage: DRIP INFUSION THERAPY USING ACYCLOVIR AT 1,500 MG/DAY
     Route: 041
  2. ACYCLOVIR [Suspect]
     Active Substance: ACYCLOVIR
     Indication: Thrombosis
  3. EDARAVONE [Concomitant]
     Active Substance: EDARAVONE
     Indication: Infarction
     Route: 042
  4. ARGATROBAN [Concomitant]
     Active Substance: ARGATROBAN
     Indication: Infarction
     Route: 065
  5. ARGATROBAN [Concomitant]
     Active Substance: ARGATROBAN
     Route: 065
  6. ASPIRIN [Concomitant]
     Active Substance: ASPIRIN
     Indication: Infarction
     Route: 065
  7. CLOPIDOGREL [Concomitant]
     Active Substance: CLOPIDOGREL BISULFATE
     Indication: Infarction
     Route: 065
  8. CLOPIDOGREL [Concomitant]
     Active Substance: CLOPIDOGREL BISULFATE
     Route: 065
  9. METHYLPREDNISOLONE [Concomitant]
     Active Substance: METHYLPREDNISOLONE
     Indication: Varicella zoster virus infection
     Dosage: STEROID PULSE THERAPY
     Route: 065
  10. METHYLPREDNISOLONE [Concomitant]
     Active Substance: METHYLPREDNISOLONE
     Indication: Thrombosis
  11. PREDNISONE [Concomitant]
     Active Substance: PREDNISONE
     Indication: Product used for unknown indication
     Route: 048
  12. APIXABAN [Concomitant]
     Active Substance: APIXABAN
     Indication: Venous thrombosis limb
     Route: 065
  13. APIXABAN [Concomitant]
     Active Substance: APIXABAN
     Indication: Deep vein thrombosis

REACTIONS (1)
  - Neutropenia [Unknown]
